FAERS Safety Report 8878253 (Version 2)
Quarter: 2013Q1

REPORT INFORMATION
  Report Type: Report from Study
  Country: JP (occurrence: JP)
  Receive Date: 20121030
  Receipt Date: 20130115
  Transmission Date: 20140127
  Serious: Yes (Other)
  Sender: FDA-Public Use
  Company Number: JP-VERTEX PHARMACEUTICAL INC.-AE-2012-009240

PATIENT
  Age: 50 Year
  Sex: Male

DRUGS (11)
  1. VX-950 (TELAPREVIR) [Suspect]
     Indication: CHRONIC HEPATITIS C
     Dosage: 2250 MG, QD
     Route: 048
     Dates: start: 20120428, end: 20120502
  2. VX-950 (TELAPREVIR) [Suspect]
     Dosage: 1500 MG, QD
     Route: 048
     Dates: start: 20120503, end: 20120721
  3. REBETOL [Suspect]
     Indication: CHRONIC HEPATITIS C
     Dosage: 800 MG, QD
     Route: 048
     Dates: start: 20120428, end: 20121005
  4. PEGINTRON [Suspect]
     Indication: CHRONIC HEPATITIS C
     Dosage: 100 ?G, QW
     Route: 058
     Dates: start: 20120428, end: 20120519
  5. PEGINTRON [Suspect]
     Dosage: 80 ?G, QW
     Route: 058
     Dates: start: 20120526, end: 20120526
  6. PEGINTRON [Suspect]
     Dosage: 100 ?G, QW
     Route: 058
     Dates: start: 20120602, end: 20120908
  7. PEGINTRON [Suspect]
     Dosage: 80 ?G/KG, QW
     Route: 058
     Dates: start: 20120915, end: 20120921
  8. PEGINTRON [Suspect]
     Dosage: 100 ?G/KG, QW
     Route: 058
     Dates: start: 20120929, end: 20121006
  9. RIKKUNSHITO [Concomitant]
     Dosage: 7.5 G, QD
     Route: 048
     Dates: start: 20120506, end: 20121012
  10. ALLEGRA [Concomitant]
     Dosage: 120 MG, QD
     Route: 048
     Dates: start: 20120428, end: 20121012
  11. MYSER [Concomitant]
     Dosage: QS/DAY, PRN
     Route: 061
     Dates: start: 20120728

REACTIONS (2)
  - Neutrophil count decreased [Recovered/Resolved]
  - Platelet count decreased [Recovered/Resolved]
